FAERS Safety Report 22041061 (Version 1)
Quarter: 2023Q1

REPORT INFORMATION
  Report Type: Spontaneous
  Country: US (occurrence: None)
  Receive Date: 20230226
  Receipt Date: 20230226
  Transmission Date: 20230418
  Serious: No
  Sender: FDA-Public Use
  Company Number: None

PATIENT
  Age: 76 Year
  Sex: Female
  Weight: 69.75 kg

DRUGS (4)
  1. BRIMONIDINE [Suspect]
     Active Substance: BRIMONIDINE TARTRATE
     Indication: Glaucoma
     Dosage: FREQUENCY : 3 TIMES A DAY;?
     Route: 047
  2. HYDROCHLOROTHIAZIDE [Concomitant]
     Active Substance: HYDROCHLOROTHIAZIDE
  3. LATANOPROST [Concomitant]
     Active Substance: LATANOPROST
  4. POTASSIUM [Concomitant]
     Active Substance: POTASSIUM

REACTIONS (1)
  - Sudden onset of sleep [None]
